FAERS Safety Report 7802338-4 (Version None)
Quarter: 2011Q4

REPORT INFORMATION
  Report Type: 
  Country: None (occurrence: None)
  Receive Date: 20111005
  Receipt Date: 20110927
  Transmission Date: 20120403
  Serious: Yes (Other)
  Sender: FDA-Public Use
  Company Number: 2011MA001277

PATIENT
  Age: 37 Year
  Sex: Female

DRUGS (5)
  1. FEVERALL [Suspect]
     Indication: SYMPHYSIOLYSIS
     Dosage: 1 GM
  2. CITALOPRAM [Concomitant]
  3. BUPRENORPHINE [Suspect]
     Indication: SYMPHYSIOLYSIS
     Dosage: 10 MCG;QG;TDER
     Route: 062
     Dates: start: 20101215, end: 20101229
  4. ACETAMINOPHEN W/ CODEINE [Suspect]
     Indication: SYMPHYSIOLYSIS
     Dosage: PO
     Route: 048
  5. MS CONTIN [Suspect]
     Indication: SYMPHYSIOLYSIS
     Dosage: 5 MG;BID;PO
     Route: 048
     Dates: start: 20100922

REACTIONS (3)
  - DRUG INEFFECTIVE [None]
  - MATERNAL EXPOSURE DURING PREGNANCY [None]
  - STILLBIRTH [None]
